FAERS Safety Report 12694568 (Version 2)
Quarter: 2016Q3

REPORT INFORMATION
  Report Type: Spontaneous
  Country: US (occurrence: US)
  Receive Date: 20160829
  Receipt Date: 20160830
  Transmission Date: 20161109
  Serious: Yes (Other)
  Sender: FDA-Public Use
  Company Number: PHEH2016US021275

PATIENT
  Age: 57 Year
  Sex: Female
  Weight: 69.4 kg

DRUGS (4)
  1. FEMARA [Suspect]
     Active Substance: LETROZOLE
     Indication: BREAST CANCER STAGE IV
     Dosage: UNK
     Route: 065
  2. WARFARIN [Suspect]
     Active Substance: WARFARIN
     Indication: PRODUCT USED FOR UNKNOWN INDICATION
     Dosage: UNK
     Route: 065
     Dates: start: 2013
  3. OXYCODONE [Concomitant]
     Active Substance: OXYCODONE
     Indication: PRODUCT USED FOR UNKNOWN INDICATION
     Dosage: 10 MG, PRN
     Route: 048
  4. AMBIEN [Concomitant]
     Active Substance: ZOLPIDEM TARTRATE
     Indication: PRODUCT USED FOR UNKNOWN INDICATION
     Dosage: 10 MG, PRN
     Route: 048

REACTIONS (16)
  - Breast cancer stage IV [Unknown]
  - Feeling abnormal [Unknown]
  - Night sweats [Unknown]
  - Fatigue [Unknown]
  - Uterine leiomyoma [Unknown]
  - Coagulopathy [Unknown]
  - International normalised ratio increased [Unknown]
  - Malignant neoplasm progression [Unknown]
  - Prothrombin time prolonged [Unknown]
  - Chills [Unknown]
  - Hyperhidrosis [Unknown]
  - Bone pain [Unknown]
  - Headache [Unknown]
  - Palpitations [Unknown]
  - Haemoglobin decreased [Unknown]
  - Pyrexia [Recovered/Resolved]

NARRATIVE: CASE EVENT DATE: 201607
